FAERS Safety Report 19034274 (Version 4)
Quarter: 2022Q2

REPORT INFORMATION
  Report Type: Spontaneous
  Country: BR (occurrence: BR)
  Receive Date: 20210319
  Receipt Date: 20220628
  Transmission Date: 20220721
  Serious: Yes (Hospitalization, Other)
  Sender: FDA-Public Use
  Company Number: BR-GLAXOSMITHKLINE-BR2020AMR212869

PATIENT

DRUGS (2)
  1. NUCALA [Suspect]
     Active Substance: MEPOLIZUMAB
     Indication: Asthma
     Dosage: 100 MG
     Route: 042
     Dates: start: 20200918
  2. BETAMETHASONE [Concomitant]
     Active Substance: BETAMETHASONE
     Indication: Product used for unknown indication
     Dosage: UNK

REACTIONS (12)
  - Condition aggravated [Unknown]
  - Asthmatic crisis [Recovered/Resolved]
  - Synovial cyst [Unknown]
  - Arthritis [Recovered/Resolved]
  - Asthma [Unknown]
  - Illness [Unknown]
  - Osteoarthritis [Unknown]
  - Application site joint movement impairment [Recovered/Resolved]
  - Feeling abnormal [Unknown]
  - Oxygen saturation abnormal [Unknown]
  - Inappropriate schedule of product administration [Unknown]
  - Product availability issue [Unknown]

NARRATIVE: CASE EVENT DATE: 20210222
